FAERS Safety Report 7638356-9 (Version None)
Quarter: 2011Q3

REPORT INFORMATION
  Report Type: 
  Country: None (occurrence: None)
  Receive Date: 20110727
  Receipt Date: 20110724
  Transmission Date: 20111222
  Serious: Yes (Other)
  Sender: FDA-Public Use
  Company Number: US-SANOFI-AVENTIS-2011SA047320

PATIENT
  Age: 71 Year
  Sex: Male

DRUGS (1)
  1. LOVENOX [Suspect]
     Route: 065
     Dates: start: 20090101

REACTIONS (1)
  - CARDIAC DISORDER [None]
